FAERS Safety Report 9232164 (Version 1)
Quarter: 2013Q2

REPORT INFORMATION
  Report Type: Spontaneous
  Country: DE (occurrence: DE)
  Receive Date: 20130415
  Receipt Date: 20130415
  Transmission Date: 20140414
  Serious: Yes (Congenital Anomaly)
  Sender: FDA-Public Use
  Company Number: DE-MYLANLABS-2013S1007187

PATIENT
  Sex: 0
  Weight: .25 kg

DRUGS (9)
  1. LAMOTRIGINE [Suspect]
     Dosage: 50 [MG/D ]/  DOSE NOT EXACTLY KNOWN; 50-300 MG/D
     Route: 064
     Dates: start: 20080922, end: 20090206
  2. ERGENYL CHRONO [Suspect]
     Dosage: 3000 [MG/D ]
     Route: 064
     Dates: start: 20080922, end: 20081231
  3. KEPPRA [Suspect]
     Dosage: 4000 [MG/D ]
     Route: 064
     Dates: start: 20080922, end: 20090213
  4. PHENYTOIN [Suspect]
     Dosage: 300 [MG/D ]
     Route: 064
     Dates: start: 20080922, end: 20090213
  5. FRISIUM [Suspect]
     Dosage: 20 [MG/D ]
     Route: 064
     Dates: start: 20080922, end: 20090213
  6. LUMINAL [Suspect]
     Dosage: 50 [MG/D ]
     Route: 064
     Dates: start: 20080922, end: 20090213
  7. TAVOR [Suspect]
     Dosage: AS NEEDED
     Route: 064
  8. VIMPAT [Concomitant]
     Dosage: FROM GW 16-19.2
     Route: 064
     Dates: end: 20090204
  9. THYROXIN [Concomitant]
     Dosage: GW 0-20
     Route: 064

REACTIONS (5)
  - Exposure during pregnancy [Recovered/Resolved]
  - Spina bifida [Not Recovered/Not Resolved]
  - Cleft lip and palate [Not Recovered/Not Resolved]
  - Limb malformation [Not Recovered/Not Resolved]
  - Microcephaly [Not Recovered/Not Resolved]
